FAERS Safety Report 4844078-X (Version None)
Quarter: 2005Q4

REPORT INFORMATION
  Report Type: 
  Country: None (occurrence: None)
  Receive Date: 20051202
  Receipt Date: 20051123
  Transmission Date: 20060501
  Serious: Yes (Hospitalization)
  Sender: FDA-Public Use
  Company Number: US-MERCK-0511USA04228

PATIENT
  Age: 84 Year
  Sex: Male
  Weight: 84 kg

DRUGS (8)
  1. VIOXX [Suspect]
     Indication: ARTHRITIS
     Route: 048
     Dates: start: 20010809, end: 20020418
  2. VIOXX [Suspect]
     Route: 048
     Dates: start: 20030511, end: 20030606
  3. CASODEX [Concomitant]
     Route: 065
  4. VITAMINS (UNSPECIFIED) [Concomitant]
     Route: 065
  5. VITAMIN E [Concomitant]
     Route: 065
  6. BETA CAROTENE [Concomitant]
     Route: 065
  7. ZINC (UNSPECIFIED) [Concomitant]
     Route: 065
  8. XANTHOPHYLL [Concomitant]
     Route: 065

REACTIONS (17)
  - ANAEMIA [None]
  - ARTHRALGIA [None]
  - ASTHENIA [None]
  - ATRIOVENTRICULAR BLOCK FIRST DEGREE [None]
  - BASAL CELL CARCINOMA [None]
  - CEREBROVASCULAR ACCIDENT [None]
  - GASTRIC ULCER HAEMORRHAGE [None]
  - GASTRIC ULCER HELICOBACTER [None]
  - HAEMOGLOBIN DECREASED [None]
  - HEART RATE INCREASED [None]
  - HEAT STROKE [None]
  - HYPERTENSIVE CRISIS [None]
  - POLYP [None]
  - SQUAMOUS CELL CARCINOMA [None]
  - STOMACH DISCOMFORT [None]
  - SYNCOPE [None]
  - TRANSIENT ISCHAEMIC ATTACK [None]
